FAERS Safety Report 6575323-0 (Version None)
Quarter: 2010Q1

REPORT INFORMATION
  Report Type: 
  Country: None (occurrence: None)
  Receive Date: 20100209
  Receipt Date: 20100129
  Transmission Date: 20100710
  Serious: Yes (Hospitalization)
  Sender: FDA-Public Use
  Company Number: DE-ROCHE-682994

PATIENT
  Age: 58 Year
  Sex: Female
  Weight: 73 kg

DRUGS (20)
  1. DIAZEPAM [Interacting]
     Route: 048
     Dates: end: 20090815
  2. TEMAZEPAM [Interacting]
     Indication: SLEEP DISORDER
     Route: 048
     Dates: end: 20090815
  3. METHADONE HCL [Suspect]
     Dosage: 23 IN DAY
     Route: 065
  4. MEPERIDINE HCL [Suspect]
     Dosage: FORM: SOLUTION FOR INJECTION
     Route: 058
  5. MEPERIDINE HCL [Suspect]
     Route: 058
  6. FUROSEMID [Concomitant]
     Route: 048
  7. DIXARIT [Concomitant]
     Route: 048
  8. DILTIAZEM HCL [Concomitant]
     Dosage: FORM: PROLONGED RELEASE TABLET
     Route: 048
  9. DOSULEPIN [Concomitant]
     Dosage: FORM: TABLET
     Route: 048
  10. RAMIPRIL [Concomitant]
     Dosage: FORM: TABLET
     Route: 048
  11. ATORVASTATIN [Concomitant]
     Dosage: FORM: FILM COATED TABLET
     Route: 048
  12. RANITIDINE HCL [Concomitant]
     Dosage: FORM: FILM COATED TABLET; RANTIDIN 150
     Route: 048
  13. METOPROLOL TARTRATE [Concomitant]
     Dosage: FORM: PROLONGED RELEASE TABLET
     Route: 048
  14. INSULIN DETEMIR [Concomitant]
     Indication: TYPE 2 DIABETES MELLITUS
     Route: 058
  15. REPAGLINIDE [Concomitant]
     Indication: TYPE 2 DIABETES MELLITUS
     Route: 048
  16. METOCLOPRAMIDE [Concomitant]
     Indication: NAUSEA
     Route: 048
     Dates: end: 20090815
  17. GLICLAZIDE [Concomitant]
     Indication: TYPE 2 DIABETES MELLITUS
     Dosage: FORM: PROLONGED RELEASE TABLET
     Route: 048
     Dates: end: 20090815
  18. CETRIZINE [Concomitant]
     Dosage: FORM: FILM COATED TABLET
     Route: 048
     Dates: end: 20090815
  19. AMOXICILLIN AND CLAVULANATE POTASSIUM [Concomitant]
     Dosage: FILM COATED TABLET, 500MG+125 MG
     Route: 048
     Dates: start: 20090806, end: 20090815
  20. CLOPIDOGREL [Concomitant]
     Dosage: FORM: FILM COATED TABLET
     Route: 048
     Dates: end: 20090815

REACTIONS (1)
  - NARCOTIC INTOXICATION [None]
